FAERS Safety Report 5962228-9 (Version None)
Quarter: 2008Q4

REPORT INFORMATION
  Report Type: 
  Country: None (occurrence: None)
  Receive Date: 20081121
  Receipt Date: 20081120
  Transmission Date: 20090506
  Serious: No
  Sender: FDA-Public Use
  Company Number: US-B.I. PHARMACEUTICALS,INC./RIDGEFIELD-2008-BP-15503BP

PATIENT
  Sex: Female

DRUGS (10)
  1. SPIRIVA [Suspect]
     Indication: CHRONIC OBSTRUCTIVE PULMONARY DISEASE
     Dosage: 18MCG
     Route: 055
     Dates: start: 20080801
  2. ADVAIR HFA [Concomitant]
     Indication: CHRONIC OBSTRUCTIVE PULMONARY DISEASE
  3. LIPITOR [Concomitant]
  4. MIRAPEX [Concomitant]
     Indication: RESTLESS LEGS SYNDROME
  5. ASPIRIN [Concomitant]
     Indication: ARTERIAL OCCLUSIVE DISEASE
  6. PANTOPRAZOLE SODIUM [Concomitant]
     Indication: GASTROOESOPHAGEAL REFLUX DISEASE
  7. SONATA [Concomitant]
     Indication: RESTLESS LEGS SYNDROME
  8. IPRATROPIUM AND ALBUTEROL [Concomitant]
     Indication: CHRONIC OBSTRUCTIVE PULMONARY DISEASE
     Route: 055
  9. ENALAPRIL MALEATE AND HYDROCHLOROTHIAZIDE [Concomitant]
  10. PROVENTIL [Concomitant]

REACTIONS (1)
  - DRUG INEFFECTIVE [None]
